FAERS Safety Report 5124549-1 (Version None)
Quarter: 2006Q3

REPORT INFORMATION
  Report Type: 
  Country: None (occurrence: None)
  Receive Date: 20060821
  Receipt Date: 20060720
  Transmission Date: 20061208
  Serious: No
  Sender: FDA-Public Use
  Company Number: TPA2006A00997

PATIENT
  Age: 58 Year
  Sex: Female
  Weight: 84.369 kg

DRUGS (2)
  1. ROZEREM [Suspect]
     Indication: INSOMNIA
     Dosage: 8 MG, PER ORAL
     Route: 048
     Dates: start: 20060524, end: 20060524
  2. NAPROXEN (NAPROXEN) (500 MILLIGRAM) [Concomitant]

REACTIONS (2)
  - RHINORRHOEA [None]
  - UPPER RESPIRATORY TRACT CONGESTION [None]
